FAERS Safety Report 23854627 (Version 3)
Quarter: 2024Q3

REPORT INFORMATION
  Report Type: Spontaneous
  Country: US (occurrence: US)
  Receive Date: 20240514
  Receipt Date: 20240709
  Transmission Date: 20241016
  Serious: No
  Sender: INCYTE
  Company Number: US-INCYTE CORPORATION-2024IN004681

PATIENT

DRUGS (6)
  1. JAKAFI [Suspect]
     Active Substance: RUXOLITINIB
     Indication: Juvenile idiopathic arthritis
     Dosage: 5 MILLIGRAM, BID
     Route: 048
     Dates: start: 20240501
  2. JAKAFI [Suspect]
     Active Substance: RUXOLITINIB
     Dosage: 5 MILLIGRAM, BID
     Route: 048
  3. ILARIS [Concomitant]
     Active Substance: CANAKINUMAB
     Indication: Product used for unknown indication
     Dosage: 150 MILLIGRAM EVERY WEEKS
     Route: 065
  4. BACTRIM [Concomitant]
     Active Substance: SULFAMETHOXAZOLE\TRIMETHOPRIM
     Indication: Nail infection
     Dosage: X10 DAYS
     Route: 065
  5. BACTRIM [Concomitant]
     Active Substance: SULFAMETHOXAZOLE\TRIMETHOPRIM
     Indication: Soft tissue infection
  6. PREDNISONE [Concomitant]
     Active Substance: PREDNISONE
     Indication: Drug hypersensitivity
     Dosage: 50 MILLIGRAM 5 DAYS
     Route: 065

REACTIONS (1)
  - Off label use [Unknown]

NARRATIVE: CASE EVENT DATE: 20240501
